FAERS Safety Report 11331718 (Version 1)
Quarter: 2015Q3

REPORT INFORMATION
  Report Type: Spontaneous
  Country: US (occurrence: None)
  Receive Date: 20150803
  Receipt Date: 20150803
  Transmission Date: 20151125
  Serious: No
  Sender: FDA-Public Use
  Company Number: 15MRZ-00078

PATIENT
  Age: 41 Year
  Sex: Female
  Weight: 132.45 kg

DRUGS (5)
  1. HUMALOG [Concomitant]
     Active Substance: INSULIN LISPRO
  2. HIGH BLOOD PRESSURE MEDICATION [Concomitant]
     Active Substance: UNSPECIFIED INGREDIENT
  3. LANTUS [Concomitant]
     Active Substance: INSULIN GLARGINE
  4. NAFTIN [Suspect]
     Active Substance: NAFTIFINE HYDROCHLORIDE
  5. NAFTIN [Suspect]
     Active Substance: NAFTIFINE HYDROCHLORIDE
     Indication: INFECTION
     Dosage: ONE TIME DAILY TO THE AFFECTED AREA
     Dates: start: 20150202, end: 20150204

REACTIONS (11)
  - Rash [None]
  - Drug ineffective [None]
  - Skin discolouration [None]
  - Application site discharge [None]
  - Skin exfoliation [None]
  - Skin odour abnormal [None]
  - Hypersensitivity [None]
  - Blister [None]
  - Onycholysis [None]
  - Skin texture abnormal [None]
  - Pain [None]
